FAERS Safety Report 8062800-9 (Version None)
Quarter: 2012Q1

REPORT INFORMATION
  Report Type: 
  Country: None (occurrence: None)
  Receive Date: 20120118
  Receipt Date: 20120113
  Transmission Date: 20120608
  Serious: Yes (Other)
  Sender: FDA-Public Use
  Company Number: 2011SP057620

PATIENT
  Age: 18 Year
  Sex: Female

DRUGS (1)
  1. IMPLANON [Suspect]
     Indication: CONTRACEPTION
     Dosage: SBDE
     Route: 059
     Dates: start: 20100602

REACTIONS (8)
  - VASCULAR COMPRESSION [None]
  - IMMUNE SYSTEM DISORDER [None]
  - VOMITING [None]
  - MUSCULOSKELETAL DISORDER [None]
  - DEVICE DISLOCATION [None]
  - ORGAN FAILURE [None]
  - SOMNOLENCE [None]
  - EATING DISORDER [None]
